FAERS Safety Report 10384459 (Version 1)
Quarter: 2014Q3

REPORT INFORMATION
  Report Type: Spontaneous
  Country: US (occurrence: None)
  Receive Date: 20140813
  Receipt Date: 20140813
  Transmission Date: 20150326
  Serious: Yes (Other)
  Sender: FDA-Public Use
  Company Number: None

PATIENT
  Age: 69 Year
  Sex: Female
  Weight: 34.02 kg

DRUGS (9)
  1. CLINDAMYCIN HCL [Suspect]
     Active Substance: CLINDAMYCIN HYDROCHLORIDE
     Indication: TOOTH ABSCESS
     Dosage: QUANTITY: 30    3 X DAILY  BY MOUTH?MAY 16 - MAY 29
     Route: 048
  2. VIT. D, FOLIC ACID, VIT. B - COMPLEX [Concomitant]
     Active Substance: FOLIC ACID\VITAMINS
  3. VIT. A [Concomitant]
  4. GARLIC. [Concomitant]
     Active Substance: GARLIC
  5. CALCIUM [Concomitant]
     Active Substance: CALCIUM
  6. TOLMETIN [Concomitant]
     Active Substance: TOLMETIN
  7. FISH OIL [Concomitant]
     Active Substance: FISH OIL
  8. FLAXSEED [Concomitant]
     Active Substance: FLAX SEED
  9. LUTEIN [Concomitant]
     Active Substance: LUTEIN

REACTIONS (3)
  - Diarrhoea [None]
  - Lip swelling [None]
  - Rash [None]

NARRATIVE: CASE EVENT DATE: 20140529
